FAERS Safety Report 18001787 (Version 3)
Quarter: 2021Q1

REPORT INFORMATION
  Report Type: Spontaneous
  Country: US (occurrence: US)
  Receive Date: 20200709
  Receipt Date: 20210118
  Transmission Date: 20210419
  Serious: Yes (Other)
  Sender: FDA-Public Use
  Company Number: US-PFIZER INC-2020263370

PATIENT
  Age: 69 Year

DRUGS (1)
  1. METAXALONE. [Suspect]
     Active Substance: METAXALONE
     Dosage: UNK

REACTIONS (4)
  - Palpitations [Unknown]
  - Cataract [Unknown]
  - Drug ineffective [Unknown]
  - Sleep disorder [Unknown]
